FAERS Safety Report 25444564 (Version 3)
Quarter: 2025Q3

REPORT INFORMATION
  Report Type: Spontaneous
  Country: EU (occurrence: EU)
  Receive Date: 20250617
  Receipt Date: 20250810
  Transmission Date: 20251020
  Serious: Yes (Other)
  Sender: ALEXION PHARMACEUTICALS
  Company Number: EU-AstraZeneca-CH-00890900A

PATIENT
  Sex: Female
  Weight: 95 kg

DRUGS (6)
  1. CALQUENCE [Suspect]
     Active Substance: ACALABRUTINIB
     Indication: Product used for unknown indication
     Dosage: 100 MILLIGRAM, Q12H
     Dates: start: 20230825
  2. BISOPROLOL FUMARATE [Concomitant]
     Active Substance: BISOPROLOL FUMARATE
     Route: 065
  3. ATORVASTATIN [Concomitant]
     Active Substance: ATORVASTATIN
     Route: 065
  4. ENTECAVIR [Concomitant]
     Active Substance: ENTECAVIR
     Route: 065
  5. METFORMIN [Concomitant]
     Active Substance: METFORMIN HYDROCHLORIDE
     Route: 065
  6. Preventax [Concomitant]
     Route: 065

REACTIONS (8)
  - White blood cell count increased [Recovered/Resolved]
  - Lymphocyte count increased [Recovered/Resolved]
  - Thrombocytopenia [Unknown]
  - Anaemia [Unknown]
  - Fatigue [Unknown]
  - Myalgia [Unknown]
  - Arthralgia [Unknown]
  - Liver disorder [Unknown]

NARRATIVE: CASE EVENT DATE: 20231025
